FAERS Safety Report 6098170-5 (Version None)
Quarter: 2009Q1

REPORT INFORMATION
  Report Type: 
  Country: None (occurrence: None)
  Receive Date: 20090227
  Receipt Date: 20090220
  Transmission Date: 20090719
  Serious: Yes (Disabling)
  Sender: FDA-Public Use
  Company Number: PHHY2009AU02245

PATIENT
  Sex: Female

DRUGS (1)
  1. EXELON [Suspect]
     Dosage: 1 PATCH A DAY
     Route: 062
     Dates: start: 20081201

REACTIONS (10)
  - CONFUSIONAL STATE [None]
  - ERYTHEMA [None]
  - FEELING ABNORMAL [None]
  - GAIT DISTURBANCE [None]
  - HALLUCINATION [None]
  - HEADACHE [None]
  - POLLAKIURIA [None]
  - SOMNOLENCE [None]
  - SWELLING FACE [None]
  - URINARY INCONTINENCE [None]
